FAERS Safety Report 11005835 (Version 3)
Quarter: 2015Q3

REPORT INFORMATION
  Report Type: Spontaneous
  Country: US (occurrence: US)
  Receive Date: 20150409
  Receipt Date: 20150714
  Transmission Date: 20151125
  Serious: Yes (Hospitalization, Disabling, Other)
  Sender: FDA-Public Use
  Company Number: US-MERCK-1504USA003804

PATIENT
  Sex: Female
  Weight: 98.87 kg

DRUGS (1)
  1. JANUVIA [Suspect]
     Active Substance: SITAGLIPTIN PHOSPHATE
     Indication: TYPE 2 DIABETES MELLITUS
     Dosage: 100 MG, QD
     Route: 048
     Dates: start: 20110620, end: 20120429

REACTIONS (33)
  - Metastasis [Unknown]
  - Abnormal loss of weight [Unknown]
  - Radiotherapy [Unknown]
  - Treatment noncompliance [Unknown]
  - Cardiac imaging procedure abnormal [Unknown]
  - Anaemia [Unknown]
  - Blood pressure decreased [Unknown]
  - Resection of rectum [Unknown]
  - Wound dehiscence [Unknown]
  - Subcutaneous abscess [Recovering/Resolving]
  - Abscess drainage [Unknown]
  - Fibrin D dimer increased [Unknown]
  - Cholecystectomy [Unknown]
  - Ileostomy [Unknown]
  - Non-cardiac chest pain [Unknown]
  - Pancreatitis chronic [Not Recovered/Not Resolved]
  - Cellulitis staphylococcal [Recovering/Resolving]
  - Lymphadenopathy [Unknown]
  - Surgery [Unknown]
  - Thyroid neoplasm [Unknown]
  - Oedema peripheral [Unknown]
  - Vomiting [Unknown]
  - Gastroenterostomy [Unknown]
  - Hepaticojejunostomy [Unknown]
  - Splenectomy [Unknown]
  - Rectal cancer [Unknown]
  - Serum ferritin increased [Unknown]
  - Constipation [Unknown]
  - Pancreaticoduodenectomy [Unknown]
  - Hepatic steatosis [Unknown]
  - Pancreatic carcinoma [Unknown]
  - Neuroendocrine carcinoma [Unknown]
  - Blood creatinine increased [Recovered/Resolved]

NARRATIVE: CASE EVENT DATE: 20120222
